FAERS Safety Report 8882134 (Version 1)
Quarter: 2012Q4

REPORT INFORMATION
  Report Type: 
  Country: CO (occurrence: CO)
  Receive Date: 20121102
  Receipt Date: 20121102
  Transmission Date: 20130627
  Serious: Yes (Hospitalization)
  Sender: FDA-Public Use
  Company Number: CO-ABBOTT-12P-036-1002676-00

PATIENT
  Age: 51 Year
  Sex: Male
  Weight: 71 kg

DRUGS (3)
  1. VALCOTE [Suspect]
     Indication: EPILEPSY
     Route: 048
     Dates: end: 20121007
  2. VALCOTE [Suspect]
     Route: 042
     Dates: start: 20121008, end: 20121010
  3. VALCOTE [Suspect]
     Route: 042
     Dates: start: 20121010, end: 20121022

REACTIONS (3)
  - Cerebral ischaemia [Not Recovered/Not Resolved]
  - Aortic dissection [Not Recovered/Not Resolved]
  - Drug level decreased [Not Recovered/Not Resolved]
